FAERS Safety Report 10243188 (Version 1)
Quarter: 2014Q2

REPORT INFORMATION
  Report Type: Spontaneous
  Country: US (occurrence: None)
  Receive Date: 20140616
  Receipt Date: 20140616
  Transmission Date: 20141212
  Serious: No
  Sender: FDA-Public Use
  Company Number: None

PATIENT
  Age: 55 Year
  Sex: Male
  Weight: 121 kg

DRUGS (9)
  1. FLUCONAZOLE [Suspect]
     Indication: FUNGAL INFECTION
     Route: 042
     Dates: start: 20140610, end: 20140611
  2. FENTANYL CITRATE [Concomitant]
  3. VANCOMYCIN [Concomitant]
  4. SERTRALINE [Concomitant]
  5. MEROPENEM [Concomitant]
  6. BISACODYL [Concomitant]
  7. INSULIN ASPART [Concomitant]
  8. CHLORHEXIDINE [Concomitant]
  9. PANTOPRAZOLE [Concomitant]

REACTIONS (2)
  - Bradycardia [None]
  - Electrocardiogram QT prolonged [None]
